FAERS Safety Report 14242178 (Version 1)
Quarter: 2017Q4

REPORT INFORMATION
  Report Type: Spontaneous
  Country: US (occurrence: US)
  Receive Date: 20171130
  Receipt Date: 20171130
  Transmission Date: 20180321
  Serious: Yes (Death)
  Sender: FDA-Public Use
  Company Number: None

PATIENT
  Age: 51 Year
  Sex: Female
  Weight: 68.4 kg

DRUGS (7)
  1. CAPECITABINE. [Suspect]
     Active Substance: CAPECITABINE
     Indication: PANCREATIC CARCINOMA
     Route: 048
     Dates: start: 20171025, end: 20171130
  2. LATORVASTATIN [Concomitant]
  3. SUCRALFATE. [Concomitant]
     Active Substance: SUCRALFATE
  4. HUMALOG [Concomitant]
     Active Substance: INSULIN LISPRO
  5. VITAMIN D [Concomitant]
     Active Substance: CHOLECALCIFEROL
  6. PROTONIX [Concomitant]
     Active Substance: PANTOPRAZOLE SODIUM
  7. CREON [Concomitant]
     Active Substance: PANCRELIPASE AMYLASE\PANCRELIPASE LIPASE\PANCRELIPASE PROTEASE

REACTIONS (1)
  - Death [None]

NARRATIVE: CASE EVENT DATE: 20171130
